FAERS Safety Report 8514057-X (Version None)
Quarter: 2012Q3

REPORT INFORMATION
  Report Type: 
  Country: None (occurrence: None)
  Receive Date: 20120717
  Receipt Date: 20120606
  Transmission Date: 20120928
  Serious: No
  Sender: FDA-Public Use
  Company Number: US-009507513-1203USA03925

PATIENT

DRUGS (2)
  1. FOSAMAX [Suspect]
     Dosage: 70 MG, QW
     Route: 048
     Dates: start: 20100827, end: 20101130
  2. PRILOSEC [Concomitant]

REACTIONS (3)
  - DYSPHAGIA [None]
  - GASTRIC DISORDER [None]
  - ABDOMINAL DISCOMFORT [None]
